FAERS Safety Report 12803031 (Version 3)
Quarter: 2016Q4

REPORT INFORMATION
  Report Type: Report from Study
  Country: MY (occurrence: MY)
  Receive Date: 20161003
  Receipt Date: 20161202
  Transmission Date: 20170207
  Serious: Yes (Hospitalization)
  Sender: FDA-Public Use
  Company Number: PHHY2016MY127292

PATIENT
  Sex: Female

DRUGS (1)
  1. AFINITOR [Suspect]
     Active Substance: EVEROLIMUS
     Indication: BREAST CANCER
     Dosage: 10 MG, UNK
     Route: 048
     Dates: start: 20160908

REACTIONS (35)
  - Vision blurred [Recovering/Resolving]
  - Fall [Recovering/Resolving]
  - Dizziness [Recovering/Resolving]
  - Toothache [Recovering/Resolving]
  - Asthenia [Recovering/Resolving]
  - Gingival ulceration [Recovering/Resolving]
  - Epilepsy [Recovering/Resolving]
  - Skin disorder [Recovering/Resolving]
  - Skin lesion [Recovering/Resolving]
  - Movement disorder [Recovering/Resolving]
  - Eye disorder [Recovering/Resolving]
  - Back pain [Recovering/Resolving]
  - Rash [Recovering/Resolving]
  - Gait disturbance [Recovering/Resolving]
  - Mouth ulceration [Recovering/Resolving]
  - Impaired healing [Recovering/Resolving]
  - Decreased appetite [Recovering/Resolving]
  - Pruritus [Recovering/Resolving]
  - Oral pain [Recovering/Resolving]
  - Muscle spasms [Unknown]
  - Oral discomfort [Recovering/Resolving]
  - Muscle twitching [Recovering/Resolving]
  - Feeding disorder [Recovering/Resolving]
  - Hypoaesthesia [Recovering/Resolving]
  - Tongue ulceration [Recovering/Resolving]
  - Sleep disorder [Recovering/Resolving]
  - Dry skin [Unknown]
  - Fatigue [Recovering/Resolving]
  - Insomnia [Recovering/Resolving]
  - Muscular weakness [Recovering/Resolving]
  - Chest pain [Recovering/Resolving]
  - Pain [Recovering/Resolving]
  - Bone disorder [Recovering/Resolving]
  - Glossodynia [Recovering/Resolving]
  - Constipation [Recovering/Resolving]
